FAERS Safety Report 22637552 (Version 1)
Quarter: 2023Q2

REPORT INFORMATION
  Report Type: Spontaneous
  Country: US (occurrence: US)
  Receive Date: 20230626
  Receipt Date: 20230626
  Transmission Date: 20230721
  Serious: No
  Sender: FDA-Public Use
  Company Number: US-SCYNEXIS, INC- 2023SCY000026

PATIENT
  Sex: Female

DRUGS (3)
  1. BREXAFEMME [Suspect]
     Active Substance: IBREXAFUNGERP CITRATE
     Indication: Vulvovaginal mycotic infection
     Dosage: UNK
  2. BREXAFEMME [Suspect]
     Active Substance: IBREXAFUNGERP CITRATE
     Dosage: UNK
     Route: 065
  3. GENTIAN VIOLET [Concomitant]
     Active Substance: GENTIAN VIOLET
     Indication: Vulvovaginal mycotic infection
     Dosage: UNK
     Route: 065

REACTIONS (1)
  - Condition aggravated [Recovering/Resolving]
